FAERS Safety Report 21661261 (Version 3)
Quarter: 2025Q4

REPORT INFORMATION
  Report Type: Spontaneous
  Country: EU (occurrence: EU)
  Receive Date: 20221130
  Receipt Date: 20251110
  Transmission Date: 20260118
  Serious: Yes (Other)
  Sender: AUROBINDO
  Company Number: EU-002147023-NVSC2022FR255904

PATIENT
  Age: 3 Year
  Sex: Male
  Weight: 15 kg

DRUGS (1)
  1. ACETAMINOPHEN [Suspect]
     Active Substance: ACETAMINOPHEN
     Indication: Pyrexia
     Dosage: 225 MILLIGRAM (ONE OR MORE TABLET)
     Route: 048

REACTIONS (6)
  - Foreign body in throat [Unknown]
  - Transaminases increased [Recovering/Resolving]
  - Vomiting [Recovering/Resolving]
  - Drug level increased [Unknown]
  - Accidental exposure to product by child [Unknown]
  - Accidental overdose [Unknown]
